FAERS Safety Report 9372797 (Version 1)
Quarter: 2013Q2

REPORT INFORMATION
  Report Type: Report from Study
  Country: US (occurrence: US)
  Receive Date: 20130627
  Receipt Date: 20130627
  Transmission Date: 20140414
  Serious: Yes (Life-Threatening, Hospitalization)
  Sender: FDA-Public Use
  Company Number: US-MYLANLABS-2013S1009062

PATIENT
  Age: 55 Year
  Sex: Male
  Weight: 136.08 kg

DRUGS (4)
  1. CLOZAPINE TABLETS [Suspect]
     Indication: SCHIZOPHRENIA, PARANOID TYPE
     Route: 048
     Dates: end: 20130305
  2. CLOZAPINE TABLETS [Suspect]
     Indication: SCHIZOPHRENIA, PARANOID TYPE
     Route: 048
     Dates: end: 20130305
  3. ZOLOFT [Concomitant]
  4. BENZATROPINE [Concomitant]

REACTIONS (1)
  - Ileus paralytic [Recovered/Resolved]
